FAERS Safety Report 19055950 (Version 1)
Quarter: 2021Q1

REPORT INFORMATION
  Report Type: Spontaneous
  Country: AR (occurrence: AR)
  Receive Date: 20210325
  Receipt Date: 20210325
  Transmission Date: 20210420
  Serious: Yes (Other)
  Sender: FDA-Public Use
  Company Number: AR-PFIZER INC-2021142493

PATIENT
  Age: 62 Year
  Sex: Female

DRUGS (1)
  1. IBRANCE [Suspect]
     Active Substance: PALBOCICLIB
     Indication: BREAST CANCER METASTATIC
     Dosage: 125 MG, CYCLIC (DAILY, SCHEME 3X1)
     Dates: start: 20190216

REACTIONS (5)
  - Peripheral swelling [Unknown]
  - Sensitive skin [Unknown]
  - Skin disorder [Unknown]
  - Urine analysis abnormal [Unknown]
  - Venous injury [Unknown]

NARRATIVE: CASE EVENT DATE: 202007
